FAERS Safety Report 8047864-0 (Version None)
Quarter: 2012Q1

REPORT INFORMATION
  Report Type: 
  Country: None (occurrence: None)
  Receive Date: 20120116
  Receipt Date: 20120104
  Transmission Date: 20120608
  Serious: Yes (Death)
  Sender: FDA-Public Use
  Company Number: US-COVIDIEN/TYCO HEALTHCARE/MALLINCKRODT-T201200043

PATIENT
  Age: 63 Year
  Sex: Female

DRUGS (4)
  1. DOXEPIN [Suspect]
     Dosage: UNK
  2. FENTANYL-100 [Suspect]
     Dosage: UNK
  3. DIAZEPAM [Suspect]
     Dosage: UNK
  4. FLUOXETINE [Suspect]
     Dosage: UNK

REACTIONS (1)
  - CARDIO-RESPIRATORY ARREST [None]
